FAERS Safety Report 7367011-8 (Version None)
Quarter: 2011Q1

REPORT INFORMATION
  Report Type: 
  Country: None (occurrence: None)
  Receive Date: 20110317
  Receipt Date: 20110317
  Transmission Date: 20110831
  Serious: Yes (Hospitalization)
  Sender: FDA-Public Use
  Company Number: None

PATIENT
  Age: 57 Year
  Sex: Male
  Weight: 95.709 kg

DRUGS (1)
  1. CLOZAPINE [Suspect]
     Indication: SCHIZOPHRENIA, DISORGANISED TYPE
     Dosage: 100 MG QAM PO, 700 MG QHS PO
     Route: 048

REACTIONS (2)
  - PANCREATITIS ACUTE [None]
  - THROMBOTIC THROMBOCYTOPENIC PURPURA [None]
